FAERS Safety Report 9005353 (Version 1)
Quarter: 2013Q1

REPORT INFORMATION
  Report Type: Spontaneous
  Country: US (occurrence: US)
  Receive Date: 20130108
  Receipt Date: 20130108
  Transmission Date: 20140127
  Serious: Yes (Death)
  Sender: FDA-Public Use
  Company Number: US-BAYER-2013-001316

PATIENT
  Age: 57 Year
  Sex: Female

DRUGS (7)
  1. DIPHENHYDRAMINE HYDROCHLORIDE [Suspect]
     Route: 048
  2. ACETAMINOPHEN W/HYDROCODONE [Suspect]
  3. TRAMADOL [Suspect]
     Route: 048
  4. PAROXETINE [Suspect]
     Route: 048
  5. HYOSCYAMINE [Suspect]
     Route: 048
  6. CYCLOBENZAPRINE [Suspect]
     Route: 048
  7. DILTIAZEM [Suspect]
     Route: 048

REACTIONS (1)
  - Drug abuse [Fatal]
